FAERS Safety Report 7475242-1 (Version None)
Quarter: 2011Q2

REPORT INFORMATION
  Report Type: 
  Country: None (occurrence: None)
  Receive Date: 20110512
  Receipt Date: 20110503
  Transmission Date: 20111010
  Serious: Yes (Other)
  Sender: FDA-Public Use
  Company Number: US-AMGEN-USASP2011023015

PATIENT
  Age: 59 Year
  Sex: Female

DRUGS (2)
  1. ENBREL [Suspect]
     Indication: RHEUMATOID ARTHRITIS
     Dosage: 50 MG, QWK
     Dates: start: 20110427
  2. ARAVA [Concomitant]
     Dosage: 1 MG, QD
     Dates: start: 20110421

REACTIONS (4)
  - HYPOAESTHESIA ORAL [None]
  - VISUAL IMPAIRMENT [None]
  - HYPOAESTHESIA FACIAL [None]
  - HYPOAESTHESIA [None]
